FAERS Safety Report 12251086 (Version 1)
Quarter: 2016Q2

REPORT INFORMATION
  Report Type: Spontaneous
  Country: US (occurrence: US)
  Receive Date: 20160410
  Receipt Date: 20160410
  Transmission Date: 20160815
  Serious: No
  Sender: FDA-Public Use
  Company Number: US-JNJFOC-20160317915

PATIENT
  Age: 75 Year
  Sex: Male
  Weight: 84.82 kg

DRUGS (3)
  1. ENBREL [Concomitant]
     Active Substance: ETANERCEPT
     Indication: ARTHRITIS
     Route: 065
  2. ZYRTEC [Suspect]
     Active Substance: CETIRIZINE HYDROCHLORIDE
     Indication: HYPERSENSITIVITY
     Dosage: HAS TAKEN AT LEAST 20 TABLETS OVER THE LAST FEW WEEKS
     Route: 048
  3. ZYRTEC [Suspect]
     Active Substance: CETIRIZINE HYDROCHLORIDE
     Indication: RHINORRHOEA
     Dosage: HAS TAKEN AT LEAST 20 TABLETS OVER THE LAST FEW WEEKS
     Route: 048

REACTIONS (2)
  - Drug effect incomplete [Unknown]
  - Wrong patient received medication [Unknown]
